FAERS Safety Report 13814273 (Version 1)
Quarter: 2017Q3

REPORT INFORMATION
  Report Type: Spontaneous
  Country: US (occurrence: US)
  Receive Date: 20170728
  Receipt Date: 20170728
  Transmission Date: 20171127
  Serious: No
  Sender: FDA-Public Use
  Company Number: None

PATIENT
  Age: 78 Year
  Sex: Female

DRUGS (1)
  1. COPAXONE [Suspect]
     Active Substance: GLATIRAMER ACETATE
     Indication: MULTIPLE SCLEROSIS
     Dosage: 40MG 3 TIMES PER WEEK
     Route: 058
     Dates: start: 20170308

REACTIONS (5)
  - Pain [None]
  - Headache [None]
  - Pyrexia [None]
  - Tremor [None]
  - Chills [None]

NARRATIVE: CASE EVENT DATE: 20170707
